FAERS Safety Report 13965597 (Version 1)
Quarter: 2017Q3

REPORT INFORMATION
  Report Type: Report from Study
  Country: BR (occurrence: BR)
  Receive Date: 20170913
  Receipt Date: 20170913
  Transmission Date: 20171128
  Serious: Yes (Other)
  Sender: FDA-Public Use
  Company Number: BR-JNJFOC-20170826600

PATIENT
  Age: 34 Year
  Sex: Male

DRUGS (10)
  1. REMICADE [Suspect]
     Active Substance: INFLIXIMAB
     Indication: ANKYLOSING SPONDYLITIS
     Route: 042
     Dates: start: 20170813
  2. OXYCONTIN [Concomitant]
     Active Substance: OXYCODONE HYDROCHLORIDE
     Route: 065
  3. ETORI [Concomitant]
     Route: 065
  4. METHOTREXATE. [Concomitant]
     Active Substance: METHOTREXATE
     Route: 065
  5. ETORICOXIB [Concomitant]
     Active Substance: ETORICOXIB
     Route: 065
  6. PREGABALIN. [Concomitant]
     Active Substance: PREGABALIN
     Route: 065
  7. DONAREN [Concomitant]
     Active Substance: TRAZODONE HYDROCHLORIDE
     Route: 065
  8. CYCLOBENZAPRINE. [Concomitant]
     Active Substance: CYCLOBENZAPRINE
     Route: 065
  9. PREBICTAL [Concomitant]
     Active Substance: PREGABALIN
     Route: 065
  10. REMICADE [Suspect]
     Active Substance: INFLIXIMAB
     Indication: ANKYLOSING SPONDYLITIS
     Route: 042
     Dates: start: 201507

REACTIONS (12)
  - Arthropathy [Unknown]
  - Chondropathy [Unknown]
  - Arrhythmia [Not Recovered/Not Resolved]
  - Hepatic infection [Recovered/Resolved]
  - Spinal pain [Not Recovered/Not Resolved]
  - Lung infection [Recovered/Resolved]
  - Drug dose omission [Unknown]
  - Weight decreased [Not Recovered/Not Resolved]
  - Inadequate diet [Unknown]
  - Cardiac infection [Recovered/Resolved with Sequelae]
  - Drug ineffective [Unknown]
  - Pain [Not Recovered/Not Resolved]

NARRATIVE: CASE EVENT DATE: 20161230
